FAERS Safety Report 5426152-2 (Version None)
Quarter: 2007Q3

REPORT INFORMATION
  Report Type: 
  Country: None (occurrence: None)
  Receive Date: 20070827
  Receipt Date: 20070817
  Transmission Date: 20080115
  Serious: Yes (Other)
  Sender: FDA-Public Use
  Company Number: US-ELI_LILLY_AND_COMPANY-US200707000533

PATIENT
  Age: 61 Year
  Sex: Male

DRUGS (5)
  1. ZYPREXA [Suspect]
     Indication: DEPRESSION
     Dosage: 15 MG, DAILY (1/D)
     Dates: start: 20050603, end: 20051122
  2. ZYPREXA [Suspect]
     Dosage: 5 MG, UNK
  3. ZYPREXA [Suspect]
     Dosage: 7.5 MG, UNK
  4. CYMBALTA [Suspect]
     Indication: DEPRESSION
     Dosage: 30 MG, UNK
  5. GEODON [Concomitant]

REACTIONS (13)
  - ANXIETY [None]
  - ASTHENIA [None]
  - CORRECTIVE LENS USER [None]
  - DISTURBANCE IN ATTENTION [None]
  - DIZZINESS [None]
  - DRUG INEFFECTIVE [None]
  - DYSPNOEA [None]
  - ECONOMIC PROBLEM [None]
  - EPISTAXIS [None]
  - FEELING ABNORMAL [None]
  - HEAD INJURY [None]
  - MEDICATION ERROR [None]
  - VISUAL DISTURBANCE [None]
